FAERS Safety Report 9538876 (Version 2)
Quarter: 2013Q3

REPORT INFORMATION
  Report Type: Spontaneous
  Country: JP (occurrence: JP)
  Receive Date: 20130920
  Receipt Date: 20130924
  Transmission Date: 20140515
  Serious: Yes (Hospitalization, Other)
  Sender: FDA-Public Use
  Company Number: JP-JNJFOC-20130907593

PATIENT
  Age: 51 Year
  Sex: Female
  Weight: 49 kg

DRUGS (11)
  1. DOXORUBICIN HYDROCHLORIDE (DOXIL) [Suspect]
     Indication: INVASIVE DUCTAL BREAST CARCINOMA
     Route: 042
  2. DOXORUBICIN HYDROCHLORIDE [Suspect]
     Indication: INVASIVE DUCTAL BREAST CARCINOMA
     Route: 042
  3. LUTEINIZING HORMONE-RELEASING HORMONE [Suspect]
     Indication: HORMONE THERAPY
     Route: 065
  4. TAMOXIFEN [Suspect]
     Indication: HORMONE THERAPY
     Route: 048
  5. TRASTUZUMAB [Suspect]
     Indication: HORMONE THERAPY
     Route: 041
  6. TRASTUZUMAB [Suspect]
     Indication: INVASIVE DUCTAL BREAST CARCINOMA
     Route: 041
  7. AROMATASE INHIBITOR [Suspect]
     Indication: INVASIVE DUCTAL BREAST CARCINOMA
     Route: 065
  8. RADIOTHERAPY [Suspect]
     Indication: INVASIVE DUCTAL BREAST CARCINOMA
     Dosage: 30 GRAY (GY)/10 FRACTIONS (FR)
     Route: 065
  9. STRONTIUM CHLORIDE [Suspect]
     Indication: INVASIVE DUCTAL BREAST CARCINOMA
     Dosage: 30 GRAY (GY)/10 FRACTIONS (FR)
     Route: 042
  10. CYCLOPHOSPHAMIDE [Suspect]
     Indication: INVASIVE DUCTAL BREAST CARCINOMA
     Route: 065
  11. DOCETAXEL [Suspect]
     Indication: INVASIVE DUCTAL BREAST CARCINOMA
     Route: 042

REACTIONS (2)
  - Acute promyelocytic leukaemia [Recovered/Resolved]
  - Off label use [Unknown]
